FAERS Safety Report 21412703 (Version 1)
Quarter: 2022Q4

REPORT INFORMATION
  Report Type: Spontaneous
  Country: US (occurrence: US)
  Receive Date: 20221005
  Receipt Date: 20221005
  Transmission Date: 20230113
  Serious: No
  Sender: FDA-Public Use
  Company Number: US-SA-2022SA403656

PATIENT
  Age: 5 Year
  Sex: Male

DRUGS (1)
  1. ELOCTATE [Suspect]
     Active Substance: EFMOROCTOCOG ALFA
     Dosage: 2000 U
     Route: 042

REACTIONS (2)
  - Osteochondritis [Unknown]
  - Pain [Unknown]

NARRATIVE: CASE EVENT DATE: 20220922
